FAERS Safety Report 15057602 (Version 6)
Quarter: 2018Q3

REPORT INFORMATION
  Report Type: Report from Study
  Country: ZA (occurrence: ZA)
  Receive Date: 20180625
  Receipt Date: 20180809
  Transmission Date: 20181010
  Serious: Yes (Hospitalization)
  Sender: FDA-Public Use
  Company Number: ZA-ROCHE-2143293

PATIENT
  Age: 57 Year
  Sex: Female
  Weight: 79.2 kg

DRUGS (24)
  1. TRAMAL [Concomitant]
     Active Substance: TRAMADOL
     Route: 065
     Dates: start: 20180619
  2. HCTZ [Concomitant]
     Active Substance: HYDROCHLOROTHIAZIDE
     Indication: HYPERTENSION
     Route: 065
     Dates: start: 20180704
  3. STILPANE (CODEINE PHOSPHATE/MEPROBAMATE/PARACETAMOL) [Concomitant]
     Indication: CANCER PAIN
     Route: 065
     Dates: start: 20161205
  4. RANITIDINE. [Concomitant]
     Active Substance: RANITIDINE
     Route: 065
     Dates: start: 20161020
  5. LACTULOSE. [Concomitant]
     Active Substance: LACTULOSE
     Route: 065
     Dates: start: 20161111
  6. TRAMAL [Concomitant]
     Active Substance: TRAMADOL
     Indication: FLANK PAIN
     Dosage: ONGOING = NOT CHECKED
     Route: 065
     Dates: start: 20180613, end: 20180618
  7. AMLODIPINE [Concomitant]
     Active Substance: AMLODIPINE BESYLATE
     Indication: BLOOD CREATININE INCREASED
     Route: 065
     Dates: start: 20180109
  8. CYKLOKAPRON [Concomitant]
     Active Substance: TRANEXAMIC ACID
     Indication: HAEMATURIA
     Route: 065
     Dates: start: 20180607, end: 20180612
  9. PROMETHAZINE [Concomitant]
     Active Substance: PROMETHAZINE\PROMETHAZINE HYDROCHLORIDE
     Route: 065
     Dates: start: 20161020
  10. TRAMAL [Concomitant]
     Active Substance: TRAMADOL
     Route: 065
     Dates: start: 20161111
  11. CITRO?SODA [Concomitant]
     Indication: DYSURIA
     Route: 065
     Dates: start: 20170104
  12. GRANISETRON [Concomitant]
     Active Substance: GRANISETRON
     Route: 065
     Dates: start: 20161020
  13. PROVERA [Concomitant]
     Active Substance: MEDROXYPROGESTERONE ACETATE
     Indication: VAGINAL HAEMORRHAGE
     Route: 067
     Dates: start: 20170802
  14. AUGMENTIN [Concomitant]
     Active Substance: AMOXICILLIN\CLAVULANATE POTASSIUM
     Indication: FLANK PAIN
     Route: 042
     Dates: start: 20180610
  15. PANADO [Concomitant]
     Active Substance: ACETAMINOPHEN
     Route: 065
     Dates: start: 20161020
  16. CIPROFLOXACIN. [Concomitant]
     Active Substance: CIPROFLOXACIN
     Indication: FLANK PAIN
     Route: 065
     Dates: start: 20180613, end: 20180618
  17. CARBOPLATIN. [Suspect]
     Active Substance: CARBOPLATIN
     Indication: CERVIX CANCER METASTATIC
     Dosage: MOST RECENT DOSE PRIOR TO THE EVENT: 28/FEB/2017
     Route: 042
     Dates: start: 20161020
  18. DEXAMETHAZONE [Concomitant]
     Active Substance: DEXAMETHASONE
     Route: 065
     Dates: start: 20161020
  19. BEVACIZUMAB. [Suspect]
     Active Substance: BEVACIZUMAB
     Indication: CERVIX CANCER METASTATIC
     Dosage: MOST RECENT DOSE PRIOR TO THE EVENT: 15/MAY/2018
     Route: 042
     Dates: start: 20161020
  20. TRAMAL [Concomitant]
     Active Substance: TRAMADOL
     Indication: CANCER PAIN
     Route: 065
     Dates: start: 20161205
  21. ATENOLOL. [Concomitant]
     Active Substance: ATENOLOL
     Indication: HYPERTENSION
     Route: 065
     Dates: start: 20171219
  22. ODIMUNE [Concomitant]
     Active Substance: EFAVIRENZ\EMTRICITABINE\TENOFOVIR DISOPROXIL FUMARATE
     Route: 065
     Dates: start: 20110115
  23. PACLITAXEL. [Suspect]
     Active Substance: PACLITAXEL
     Indication: CERVIX CANCER METASTATIC
     Dosage: MOST RECENT DOSE PRIOR TO THE EVENT:28/FEB/2017
     Route: 042
     Dates: start: 20161020
  24. TRAMAL [Concomitant]
     Active Substance: TRAMADOL
     Indication: FLANK PAIN
     Dosage: ONGOING = CHECKED
     Route: 065
     Dates: start: 20161111

REACTIONS (1)
  - Hydronephrosis [Recovered/Resolved]

NARRATIVE: CASE EVENT DATE: 20180618
